FAERS Safety Report 11786986 (Version 2)
Quarter: 2016Q1

REPORT INFORMATION
  Report Type: Report from Study
  Country: US (occurrence: US)
  Receive Date: 20151130
  Receipt Date: 20160104
  Transmission Date: 20160525
  Serious: Yes (Hospitalization, Other)
  Sender: FDA-Public Use
  Company Number: US-AMGEN-USASL2015125834

PATIENT
  Age: 37 Year
  Sex: Female

DRUGS (1)
  1. ENBREL [Suspect]
     Active Substance: ETANERCEPT
     Indication: ANKYLOSING SPONDYLITIS
     Dosage: UNK
     Route: 065
     Dates: start: 20101026, end: 2013

REACTIONS (5)
  - Premature delivery [Recovered/Resolved]
  - Pregnancy [Recovered/Resolved]
  - Caesarean section [Recovered/Resolved]
  - Coagulopathy [Unknown]
  - Coagulation factor V level abnormal [Unknown]

NARRATIVE: CASE EVENT DATE: 2011
